FAERS Safety Report 8265755-7 (Version None)
Quarter: 2012Q2

REPORT INFORMATION
  Report Type: 
  Country: None (occurrence: None)
  Receive Date: 20120403
  Receipt Date: 20120319
  Transmission Date: 20120825
  Serious: Yes (Life-Threatening, Hospitalization, Other)
  Sender: FDA-Public Use
  Company Number: 2012P1010348

PATIENT
  Age: 2 Year
  Sex: Male

DRUGS (1)
  1. RISPERIDONE [Suspect]
     Indication: PSYCHOMOTOR HYPERACTIVITY
     Dosage: 2.5 MG;X1;

REACTIONS (12)
  - MOVEMENT DISORDER [None]
  - NEUROLEPTIC MALIGNANT SYNDROME [None]
  - DYSKINESIA [None]
  - ALTERED STATE OF CONSCIOUSNESS [None]
  - SOMNOLENCE [None]
  - DAYDREAMING [None]
  - APHASIA [None]
  - HYPERTONIA [None]
  - CHOREOATHETOSIS [None]
  - INCORRECT DOSE ADMINISTERED [None]
  - TACHYPNOEA [None]
  - ECHOPRAXIA [None]
